FAERS Safety Report 16837261 (Version 2)
Quarter: 2020Q3

REPORT INFORMATION
  Report Type: Spontaneous
  Country: US (occurrence: US)
  Receive Date: 20190923
  Receipt Date: 20200813
  Transmission Date: 20201102
  Serious: No
  Sender: FDA-Public Use
  Company Number: US-NOVEN PHARMACEUTICALS, INC.-US2019000405

PATIENT

DRUGS (4)
  1. TOPROL XL [Concomitant]
     Active Substance: METOPROLOL SUCCINATE
     Indication: HYPERTENSION
     Dosage: 15 MG, UNK
  2. COMBIPATCH [Suspect]
     Active Substance: ESTRADIOL\NORETHINDRONE ACETATE
     Indication: HOT FLUSH
     Dosage: 50/140 MG, UNKNOWN
     Route: 062
     Dates: start: 2015, end: 201808
  3. COMBIPATCH [Suspect]
     Active Substance: ESTRADIOL\NORETHINDRONE ACETATE
     Indication: PALPITATIONS
     Dosage: 50/250 MG, UNKNOWN
     Route: 062
     Dates: start: 201809
  4. COMBIPATCH [Suspect]
     Active Substance: ESTRADIOL\NORETHINDRONE ACETATE
     Indication: OFF LABEL USE
     Dosage: 50/250 MG, UNKNOWN
     Route: 062

REACTIONS (8)
  - Off label use [Not Recovered/Not Resolved]
  - Plastic surgery [Unknown]
  - Metrorrhagia [Not Recovered/Not Resolved]
  - Product adhesion issue [Not Recovered/Not Resolved]
  - Breast tenderness [Unknown]
  - Dysmenorrhoea [Unknown]
  - Wrong technique in product usage process [Not Recovered/Not Resolved]
  - Treatment noncompliance [Recovered/Resolved]

NARRATIVE: CASE EVENT DATE: 201809
